FAERS Safety Report 23771015 (Version 1)
Quarter: 2024Q2

REPORT INFORMATION
  Report Type: Spontaneous
  Country: CA (occurrence: CA)
  Receive Date: 20240423
  Receipt Date: 20240423
  Transmission Date: 20240716
  Serious: Yes (Hospitalization)
  Sender: FDA-Public Use
  Company Number: CA-TEVA-VS-3186435

PATIENT
  Age: 55 Year
  Sex: Female

DRUGS (2)
  1. METHOTREXATE SODIUM [Suspect]
     Active Substance: METHOTREXATE SODIUM
     Indication: Rheumatoid arthritis
     Route: 058
  2. PREDNISONE [Concomitant]
     Active Substance: PREDNISONE
     Indication: Product used for unknown indication
     Route: 065

REACTIONS (5)
  - COVID-19 [Not Recovered/Not Resolved]
  - Off label use [Not Recovered/Not Resolved]
  - Somnolence [Not Recovered/Not Resolved]
  - Condition aggravated [Not Recovered/Not Resolved]
  - Drug ineffective [Not Recovered/Not Resolved]
